FAERS Safety Report 25400051 (Version 2)
Quarter: 2025Q2

REPORT INFORMATION
  Report Type: Spontaneous
  Country: US (occurrence: US)
  Receive Date: 20250605
  Receipt Date: 20250619
  Transmission Date: 20250717
  Serious: Yes (Life-Threatening, Hospitalization, Other)
  Sender: ALKEM
  Company Number: None

PATIENT
  Age: 70 Year
  Sex: Female

DRUGS (2)
  1. MYCOPHENOLATE MOFETIL [Suspect]
     Active Substance: MYCOPHENOLATE MOFETIL
     Indication: Gout
     Route: 065
  2. PEGLOTICASE [Suspect]
     Active Substance: PEGLOTICASE
     Indication: Gout
     Route: 065

REACTIONS (11)
  - Diabetic ketoacidosis [Unknown]
  - Acute kidney injury [Recovering/Resolving]
  - Shock [Recovering/Resolving]
  - Mental status changes [Recovering/Resolving]
  - Agitation [Recovering/Resolving]
  - Rash vesicular [Recovering/Resolving]
  - Disseminated varicella zoster virus infection [Recovering/Resolving]
  - Cytomegalovirus infection [Unknown]
  - Varicella zoster gastritis [Recovering/Resolving]
  - Varicella zoster sepsis [Recovering/Resolving]
  - Varicella zoster pneumonia [Recovering/Resolving]
